FAERS Safety Report 18447186 (Version 1)
Quarter: 2020Q4

REPORT INFORMATION
  Report Type: Spontaneous
  Country: US (occurrence: US)
  Receive Date: 20201030
  Receipt Date: 20201030
  Transmission Date: 20210114
  Serious: No
  Sender: FDA-Public Use
  Company Number: US-NOVOPROD-693190

PATIENT
  Age: 65 Year
  Sex: Male

DRUGS (1)
  1. TRESIBA [Suspect]
     Active Substance: INSULIN DEGLUDEC
     Indication: TYPE 1 DIABETES MELLITUS
     Dosage: 30 UNITS ONCE A DAY IN THE MORNING
     Route: 058
     Dates: start: 2018

REACTIONS (6)
  - Blood glucose decreased [Recovered/Resolved]
  - Device malfunction [Unknown]
  - Inappropriate schedule of product administration [Unknown]
  - Muscular weakness [Recovering/Resolving]
  - Blood glucose increased [Recovered/Resolved]
  - Wrong technique in product usage process [Unknown]

NARRATIVE: CASE EVENT DATE: 20191022
